FAERS Safety Report 8805915 (Version 1)
Quarter: 2012Q4

REPORT INFORMATION
  Report Type: 
  Country: US (occurrence: None)
  Receive Date: 20120919
  Receipt Date: 20120919
  Transmission Date: 20130627
  Serious: Yes (Hospitalization)
  Sender: FDA-Public Use
  Company Number: None

PATIENT
  Sex: Male
  Weight: 84.7 kg

DRUGS (5)
  1. CYCLOPHOSPHAMIDE [Suspect]
  2. DOXORUBICIN HYDROCHLORIDE [Suspect]
  3. PREDNISONE [Suspect]
  4. RITUXIMAB [Suspect]
  5. VINCRISTINE  SULFATE [Suspect]

REACTIONS (10)
  - Ascites [None]
  - Splenic vein thrombosis [None]
  - Gastric varices [None]
  - Mass [None]
  - Spleen disorder [None]
  - Venous injury [None]
  - Nausea [None]
  - Vomiting [None]
  - Pain [None]
  - Anaemia [None]
